FAERS Safety Report 8501537-6 (Version None)
Quarter: 2012Q3

REPORT INFORMATION
  Report Type: 
  Country: None (occurrence: None)
  Receive Date: 20120710
  Receipt Date: 20120705
  Transmission Date: 20120928
  Serious: Yes (Death, Life-Threatening, Other)
  Sender: FDA-Public Use
  Company Number: US-PFIZER INC-2003024947

PATIENT
  Sex: Female
  Weight: 90.7 kg

DRUGS (22)
  1. NYSTATIN [Concomitant]
     Dosage: UNK
     Route: 065
  2. VISTARIL [Interacting]
     Indication: ILL-DEFINED DISORDER
     Dosage: UNK
     Route: 065
  3. WARFARIN SODIUM [Concomitant]
     Dosage: UNK
     Route: 065
  4. ZITHROMAX [Interacting]
     Indication: BRONCHITIS
  5. SERETIDE MITE [Concomitant]
     Dosage: UNK
     Route: 065
  6. FUROSEMIDE [Concomitant]
     Dosage: UNK
     Route: 065
  7. ZOLOFT [Interacting]
     Indication: ILL-DEFINED DISORDER
     Dosage: UNK
     Route: 065
  8. AMIODARONE HCL [Interacting]
     Indication: ILL-DEFINED DISORDER
     Dosage: UNK
     Route: 065
  9. GLYBURIDE [Interacting]
     Indication: ILL-DEFINED DISORDER
     Dosage: UNK
     Route: 065
  10. ZAFIRLUKAST [Concomitant]
     Dosage: UNK
     Route: 065
  11. LEVOTHYROXINE SODIUM [Concomitant]
     Dosage: UNK
     Route: 065
  12. DOCUSATE SODIUM [Concomitant]
     Dosage: UNK
     Route: 065
  13. LOSARTAN POTASSIUM [Concomitant]
     Dosage: UNK
     Route: 065
  14. TUSSIONEX ^PENNWALT^ [Concomitant]
     Dosage: UNK
     Route: 065
  15. ACETYLSALICYLIC ACID SRT [Concomitant]
     Dosage: UNK
     Route: 065
  16. DEXAMETHASONE ACETATE [Concomitant]
     Dosage: UNK
     Route: 065
  17. ZITHROMAX [Suspect]
     Indication: CELLULITIS
     Dosage: DAILY
     Route: 048
  18. METOLAZONE [Concomitant]
     Dosage: UNK
     Route: 065
  19. SPIRONOLACTONE [Concomitant]
     Dosage: UNK
     Route: 065
  20. LORAZEPAM [Concomitant]
     Dosage: UNK
     Route: 065
  21. BENADRYL [Interacting]
     Indication: ILL-DEFINED DISORDER
     Dosage: UNK
     Route: 065
  22. ZOLPIDEM TARTRATE [Concomitant]
     Dosage: UNK
     Route: 065

REACTIONS (4)
  - RASH [None]
  - ISCHAEMIC CARDIOMYOPATHY [None]
  - HYPERSENSITIVITY [None]
  - DRUG INTERACTION [None]
